FAERS Safety Report 5675509-3 (Version None)
Quarter: 2008Q2

REPORT INFORMATION
  Report Type: 
  Country: None (occurrence: None)
  Receive Date: 20080311
  Receipt Date: 20070612
  Transmission Date: 20081010
  Serious: Yes (Hospitalization)
  Sender: FDA-Public Use
  Company Number: PHEH2007US08666

PATIENT

DRUGS (3)
  1. TRILEPTAL [Suspect]
     Indication: CONVULSION
     Dosage: 1200 MG, QD, ORAL
     Route: 048
     Dates: start: 20070401
  2. KEPRA (LEVETIRACETAM) [Concomitant]
  3. DEPAKOTE [Concomitant]

REACTIONS (4)
  - DIPLOPIA [None]
  - DIZZINESS [None]
  - FALL [None]
  - FATIGUE [None]
